FAERS Safety Report 8601255-X (Version None)
Quarter: 2012Q3

REPORT INFORMATION
  Report Type: 
  Country: None (occurrence: None)
  Receive Date: 20120817
  Receipt Date: 20120814
  Transmission Date: 20120928
  Serious: Yes (Other)
  Sender: FDA-Public Use
  Company Number: PHEH2012US005793

PATIENT
  Sex: Female

DRUGS (16)
  1. FLUTICASONE PROPIONATE [Concomitant]
     Dosage: 1 DF, UNK
     Route: 045
  2. RECLAST [Suspect]
     Indication: OSTEOPOROSIS
     Dosage: 5 MG, UNK
     Route: 042
     Dates: start: 20120313
  3. IRON SUPPLEMENTS [Concomitant]
     Dosage: UNK UKN, UNK
  4. MUCINEX DM [Concomitant]
     Dosage: 1 DF, PRN (1 - 2 EVRY 2 HRS
  5. LOSARTAN POTASSIUM [Concomitant]
     Dosage: 100 MG, UNK
  6. MULTI-VITAMINS [Concomitant]
     Dosage: UNK UKN, UNK
  7. FLAXSEED OIL [Concomitant]
     Dosage: 1 DF, UNK
  8. FERROUS SULFATE TAB [Concomitant]
     Dosage: 5 MG, BID
  9. CALCIUM [Concomitant]
     Dosage: 500 MG, BID
  10. VITAMIN B COMPLEX WITH C [Concomitant]
     Dosage: UNK UKN, UNK
  11. SYNTHROID [Concomitant]
     Dosage: 0.088 MG, UNK
  12. OMEPRAZOLE [Concomitant]
     Dosage: 20 MG, UNK
  13. ASPIRIN [Concomitant]
     Dosage: 81 MG, UNK
  14. AMLODIPINE [Concomitant]
     Dosage: 5 MG, UNK
  15. VITAMIN B-12 [Concomitant]
     Dosage: 500 UG, UNK
  16. AZITHROMYCIN [Concomitant]
     Dosage: 250 MG, 2X ONE DAY AND 1X EACH DAY THERE AFTER

REACTIONS (8)
  - CARDIOVASCULAR DISORDER [None]
  - DIARRHOEA [None]
  - PAIN IN JAW [None]
  - FACIAL PAIN [None]
  - MYALGIA [None]
  - SYNCOPE [None]
  - INJECTION SITE HAEMORRHAGE [None]
  - PAIN IN EXTREMITY [None]
